FAERS Safety Report 6793863-6 (Version None)
Quarter: 2010Q2

REPORT INFORMATION
  Report Type: 
  Country: None (occurrence: None)
  Receive Date: 20100624
  Receipt Date: 20090410
  Transmission Date: 20101027
  Serious: No
  Sender: FDA-Public Use
  Company Number: US-PFIZER INC-2009174483

PATIENT
  Sex: Female
  Weight: 61.2 kg

DRUGS (2)
  1. DEPO-PROVERA [Suspect]
     Dates: start: 19930101
  2. CLARITIN-D [Concomitant]
     Indication: HYPERSENSITIVITY

REACTIONS (13)
  - ACNE [None]
  - BLOOD OESTROGEN DECREASED [None]
  - DEPRESSED MOOD [None]
  - FATIGUE [None]
  - HAIR GROWTH ABNORMAL [None]
  - HEADACHE [None]
  - HOT FLUSH [None]
  - HYPERHIDROSIS [None]
  - INFLUENZA [None]
  - MIGRAINE [None]
  - SINUSITIS [None]
  - VISUAL IMPAIRMENT [None]
  - WEIGHT INCREASED [None]
